FAERS Safety Report 9294750 (Version 2)
Quarter: 2013Q4

REPORT INFORMATION
  Report Type: Report from Study
  Country: CA (occurrence: CA)
  Receive Date: 20130517
  Receipt Date: 20131113
  Transmission Date: 20140711
  Serious: Yes (Life-Threatening, Other)
  Sender: FDA-Public Use
  Company Number: CA-JNJFOC-20130503591

PATIENT
  Age: 41 Year
  Sex: Male
  Weight: 83 kg

DRUGS (13)
  1. REMICADE [Suspect]
     Indication: CROHN^S DISEASE
     Dosage: INDUCTION DOSE ON WEEK 2
     Route: 042
     Dates: start: 200608
  2. REMICADE [Suspect]
     Indication: CROHN^S DISEASE
     Route: 042
     Dates: start: 201301
  3. REMICADE [Suspect]
     Indication: CROHN^S DISEASE
     Route: 042
     Dates: end: 20130319
  4. REMICADE [Suspect]
     Indication: CROHN^S DISEASE
     Route: 042
     Dates: start: 20130211
  5. REMICADE [Suspect]
     Indication: CROHN^S DISEASE
     Dosage: WEEK 2 AND THEN FOLLOWING EVERY 8 WEEKS
     Route: 042
     Dates: start: 20130222, end: 20130222
  6. REMICADE [Suspect]
     Indication: COLITIS ULCERATIVE
     Dosage: WEEK 2 AND THEN FOLLOWING EVERY 8 WEEKS
     Route: 042
     Dates: start: 20130222, end: 20130222
  7. REMICADE [Suspect]
     Indication: COLITIS ULCERATIVE
     Route: 042
     Dates: end: 20130319
  8. REMICADE [Suspect]
     Indication: COLITIS ULCERATIVE
     Route: 042
     Dates: start: 20130211
  9. REMICADE [Suspect]
     Indication: COLITIS ULCERATIVE
     Route: 042
     Dates: start: 201301
  10. REMICADE [Suspect]
     Indication: COLITIS ULCERATIVE
     Dosage: INDUCTION DOSE ON WEEK 2
     Route: 042
     Dates: start: 200608
  11. TYLENOL [Concomitant]
     Indication: PREMEDICATION
     Route: 048
  12. SOLU CORTEF [Concomitant]
     Indication: PREMEDICATION
     Route: 042
  13. BENADRYL [Concomitant]
     Indication: PREMEDICATION
     Route: 042
     Dates: start: 20130222

REACTIONS (11)
  - Infusion related reaction [Recovering/Resolving]
  - Rash [Recovered/Resolved]
  - Pruritus [Recovered/Resolved]
  - Urticaria [Recovered/Resolved]
  - Flushing [Recovering/Resolving]
  - Malaise [Recovering/Resolving]
  - Anxiety [Recovered/Resolved]
  - Cyanosis [Not Recovered/Not Resolved]
  - Adverse drug reaction [Unknown]
  - Dyspnoea [Unknown]
  - Nausea [Unknown]
